FAERS Safety Report 21945000 (Version 2)
Quarter: 2023Q1

REPORT INFORMATION
  Report Type: Report from Study
  Country: CN (occurrence: None)
  Receive Date: 20230202
  Receipt Date: 20230223
  Transmission Date: 20230418
  Serious: Yes (Hospitalization)
  Sender: FDA-Public Use
  Company Number: CN-ROCHE-3274576

PATIENT
  Age: 29 Year
  Sex: Male
  Weight: 70 kg

DRUGS (2)
  1. TOCILIZUMAB [Suspect]
     Active Substance: TOCILIZUMAB
     Indication: Follicular lymphoma
     Dosage: START DATE OF MOST RECENT DOSE OF TOCILIZUMAB (520 MG) PRIOR TO AE/SAE ON 09/SEP/2022 11:00 AM?END D
     Route: 042
     Dates: start: 20220909
  2. MOSUNETUZUMAB [Suspect]
     Active Substance: MOSUNETUZUMAB
     Indication: Follicular lymphoma
     Dosage: START DATE OF MOST RECENT DOSE OF MOSUNETUZUMAB (30 MG) PRIOR TO AE/SAE ON 15/DEC/2022 AT 12:30 PM?E
     Route: 042
     Dates: start: 20220908

REACTIONS (1)
  - COVID-19 pneumonia [Not Recovered/Not Resolved]

NARRATIVE: CASE EVENT DATE: 20230120
